FAERS Safety Report 5521615-3 (Version None)
Quarter: 2007Q4

REPORT INFORMATION
  Report Type: 
  Country: None (occurrence: None)
  Receive Date: 20071119
  Receipt Date: 20071119
  Transmission Date: 20080405
  Serious: Yes (Hospitalization)
  Sender: FDA-Public Use
  Company Number: None

PATIENT
  Age: 59 Year
  Sex: Male
  Weight: 63.1407 kg

DRUGS (10)
  1. DOCETAXEL [Suspect]
     Indication: NEOPLASM MALIGNANT
     Dosage: 25MG/M2 IV QO WEEK
     Route: 042
  2. FLUOROURACIL [Suspect]
     Indication: NEOPLASM MALIGNANT
     Dosage: 600MG/M2/D X5 D  IV
     Route: 042
  3. MULTI-VITAMIN [Concomitant]
  4. DILTIAZAM [Concomitant]
  5. METOPROLOL [Concomitant]
  6. ALLOPURINOL [Concomitant]
  7. PROCHOLOPERAZINE [Concomitant]
  8. APROPINE [Concomitant]
  9. HYDROCODONE BITARTRATE [Concomitant]
  10. LOPERAMIDE HCL [Concomitant]

REACTIONS (9)
  - CLOSTRIDIUM DIFFICILE COLITIS [None]
  - DIARRHOEA [None]
  - FEBRILE NEUTROPENIA [None]
  - INFLUENZA [None]
  - NASAL CONGESTION [None]
  - PHARYNGOLARYNGEAL PAIN [None]
  - PRODUCTIVE COUGH [None]
  - UPPER RESPIRATORY TRACT INFECTION BACTERIAL [None]
  - VIRAL UPPER RESPIRATORY TRACT INFECTION [None]
